FAERS Safety Report 7005687-5 (Version None)
Quarter: 2010Q3

REPORT INFORMATION
  Report Type: 
  Country: None (occurrence: None)
  Receive Date: 20100921
  Receipt Date: 20100910
  Transmission Date: 20110219
  Serious: Yes (Hospitalization, Congenital Anomaly, Other)
  Sender: FDA-Public Use
  Company Number: B0675502B

PATIENT

DRUGS (8)
  1. LAMOTRIGINE [Suspect]
  2. LANSOPRAZOLE [Concomitant]
  3. SERTRALINE HYDROCHLORIDE [Concomitant]
  4. PROPRANOLOL HYDROCHLORIDE [Concomitant]
  5. ISPAGHULA HUSK [Concomitant]
  6. FOLIC ACID [Concomitant]
  7. ARIPIPRAZOLE [Concomitant]
  8. DICLOFENAC SODIUM [Concomitant]

REACTIONS (2)
  - DRUG EXPOSURE DURING PREGNANCY [None]
  - VENTRICULAR SEPTAL DEFECT [None]
